FAERS Safety Report 5508306-X (Version None)
Quarter: 2007Q4

REPORT INFORMATION
  Report Type: 
  Country: None (occurrence: None)
  Receive Date: 20071106
  Receipt Date: 20071019
  Transmission Date: 20080405
  Serious: No
  Sender: FDA-Public Use
  Company Number: US-BOEHRINGER INGELHEIM PHARMACEUTICALS, INC.-2007-BP-23138BP

PATIENT
  Sex: Male

DRUGS (3)
  1. FLOMAX [Suspect]
     Indication: BENIGN PROSTATIC HYPERPLASIA
     Route: 048
     Dates: start: 20070928
  2. TEMAZEPAM [Concomitant]
  3. OXYBUTYNIN CHLORIDE [Concomitant]

REACTIONS (2)
  - POLLAKIURIA [None]
  - RESIDUAL URINE [None]
